FAERS Safety Report 9893493 (Version 3)
Quarter: 2014Q3

REPORT INFORMATION
  Report Type: Spontaneous
  Country: US (occurrence: US)
  Receive Date: 20140213
  Receipt Date: 20140919
  Transmission Date: 20150326
  Serious: Yes (Hospitalization, Other)
  Sender: FDA-Public Use
  Company Number: US-009507513-1402USA005082

PATIENT
  Sex: Female

DRUGS (1)
  1. NUVARING [Suspect]
     Active Substance: ETHINYL ESTRADIOL\ETONOGESTREL
     Indication: MENORRHAGIA
     Dosage: UNK
     Route: 067
     Dates: end: 20130328

REACTIONS (10)
  - Vena cava filter insertion [Unknown]
  - Vena cava thrombosis [Recovered/Resolved]
  - Uterine leiomyoma [Unknown]
  - Muscle spasms [Unknown]
  - Hypercoagulation [Unknown]
  - Pulmonary hypertension [Unknown]
  - Joint injury [Unknown]
  - Vena cava filter removal [Unknown]
  - Off label use [Recovered/Resolved]
  - Pulmonary embolism [Unknown]

NARRATIVE: CASE EVENT DATE: 2012
